FAERS Safety Report 14672357 (Version 2)
Quarter: 2018Q2

REPORT INFORMATION
  Report Type: Spontaneous
  Country: DE (occurrence: DE)
  Receive Date: 20180323
  Receipt Date: 20180620
  Transmission Date: 20180711
  Serious: Yes (Hospitalization, Other)
  Sender: FDA-Public Use
  Company Number: DE-SUN PHARMACEUTICAL INDUSTRIES LTD-2018RR-167884

PATIENT
  Age: 64 Year
  Sex: Male

DRUGS (5)
  1. EXTAVIA [Suspect]
     Active Substance: INTERFERON BETA-1B
     Indication: MULTIPLE SCLEROSIS
     Dosage: 250 UG, QOD
     Route: 058
     Dates: start: 20110516
  2. SORMODREN [Concomitant]
     Active Substance: BORNAPRINE HYDROCHLORIDE
     Indication: HYPERHIDROSIS
     Dosage: 8 MG, QD
     Route: 048
     Dates: start: 20130812
  3. BACLOFEN. [Suspect]
     Active Substance: BACLOFEN
     Indication: MULTIPLE SCLEROSIS
     Dosage: 25 MG, QID
     Route: 065
  4. SORMODREN [Suspect]
     Active Substance: BORNAPRINE HYDROCHLORIDE
     Indication: HYPERHIDROSIS
     Dosage: 2 MG, QID
     Route: 048
     Dates: start: 20130812
  5. TIZANIDINE. [Concomitant]
     Active Substance: TIZANIDINE
     Indication: MUSCLE SPASTICITY
     Dosage: 8 MG, QD
     Route: 048
     Dates: start: 20130812

REACTIONS (3)
  - Colon cancer [Recovering/Resolving]
  - Disturbance in attention [Recovered/Resolved]
  - Epilepsy [Unknown]

NARRATIVE: CASE EVENT DATE: 20170512
